FAERS Safety Report 6377671-6 (Version None)
Quarter: 2009Q3

REPORT INFORMATION
  Report Type: 
  Country: None (occurrence: None)
  Receive Date: 20090925
  Receipt Date: 20090914
  Transmission Date: 20100115
  Serious: Yes (Other)
  Sender: FDA-Public Use
  Company Number: CHPA2009US18544

PATIENT
  Sex: Female

DRUGS (1)
  1. EX-LAX UNKNOWN (NCH) [Suspect]
     Indication: CONSTIPATION
     Dosage: 2 TABLETS, ONCE DAILY
     Route: 048

REACTIONS (7)
  - ABDOMINAL PAIN UPPER [None]
  - DIARRHOEA [None]
  - EMOTIONAL DISTRESS [None]
  - FATIGUE [None]
  - INSOMNIA [None]
  - LOSS OF CONSCIOUSNESS [None]
  - MALAISE [None]
